FAERS Safety Report 12759901 (Version 1)
Quarter: 2016Q3

REPORT INFORMATION
  Report Type: Report from Study
  Country: ID (occurrence: ID)
  Receive Date: 20160919
  Receipt Date: 20160919
  Transmission Date: 20161109
  Serious: Yes (Other)
  Sender: FDA-Public Use
  Company Number: ID-BAYER-2016-171692

PATIENT
  Age: 50 Year
  Sex: Female

DRUGS (2)
  1. NEXAVAR [Suspect]
     Active Substance: SORAFENIB
     Indication: HEPATOCELLULAR CARCINOMA
     Dosage: 1X200 MG DAILY DOSE
     Route: 048
     Dates: start: 20160802, end: 20160804
  2. NEXAVAR [Suspect]
     Active Substance: SORAFENIB
     Indication: HEPATOCELLULAR CARCINOMA
     Dosage: 200 MG, BID (2X200 MG)
     Route: 048
     Dates: start: 20160805

REACTIONS (6)
  - Pruritus generalised [Recovering/Resolving]
  - Haematochezia [Not Recovered/Not Resolved]
  - Generalised erythema [Recovering/Resolving]
  - Erythema [Not Recovered/Not Resolved]
  - Pruritus [Not Recovered/Not Resolved]
  - Dry skin [Not Recovered/Not Resolved]

NARRATIVE: CASE EVENT DATE: 2016
